FAERS Safety Report 21932464 (Version 2)
Quarter: 2023Q2

REPORT INFORMATION
  Report Type: Spontaneous
  Country: JP (occurrence: JP)
  Receive Date: 20230131
  Receipt Date: 20230418
  Transmission Date: 20230722
  Serious: Yes (Hospitalization, Other)
  Sender: FDA-Public Use
  Company Number: JP-DSJP-DSJ-2023-103058

PATIENT
  Age: 83 Year
  Sex: Female
  Weight: 49.8 kg

DRUGS (50)
  1. PRASUGREL HYDROCHLORIDE [Suspect]
     Active Substance: PRASUGREL HYDROCHLORIDE
     Indication: Myocardial ischaemia
     Dosage: 3.75 MG, QD
     Route: 048
  2. PRASUGREL HYDROCHLORIDE [Suspect]
     Active Substance: PRASUGREL HYDROCHLORIDE
     Indication: Coronary artery stenosis
  3. PRASUGREL HYDROCHLORIDE [Suspect]
     Active Substance: PRASUGREL HYDROCHLORIDE
     Indication: Percutaneous coronary intervention
  4. EPINEPHRINE [Suspect]
     Active Substance: EPINEPHRINE
     Indication: Blood pressure decreased
     Dosage: 0.03UG/KG/MIN
     Route: 065
     Dates: start: 20190930, end: 20190930
  5. EPINEPHRINE [Suspect]
     Active Substance: EPINEPHRINE
     Dosage: 0.06UG/KG/MIN
     Route: 065
     Dates: start: 20190930, end: 20190930
  6. EPINEPHRINE [Suspect]
     Active Substance: EPINEPHRINE
     Dosage: 0.1UG/KG/MIN
     Route: 065
     Dates: start: 20190930, end: 20190930
  7. AMLODIPINE BESYLATE [Concomitant]
     Active Substance: AMLODIPINE BESYLATE
     Indication: Hypertension
     Dosage: 2.5 MG, BID
     Route: 048
  8. ASPIRIN [Concomitant]
     Active Substance: ASPIRIN
     Indication: Coronary artery disease
     Dosage: UNK
     Route: 048
  9. NICORANDIL [Concomitant]
     Active Substance: NICORANDIL
     Indication: Coronary artery disease
     Dosage: 5 MG, TID
     Route: 048
  10. NICORANDIL [Concomitant]
     Active Substance: NICORANDIL
     Indication: Myocardial ischaemia
  11. NICORANDIL [Concomitant]
     Active Substance: NICORANDIL
     Indication: Coronary artery stenosis
  12. FENTANYL CITRATE [Concomitant]
     Active Substance: FENTANYL CITRATE
     Indication: Anaesthesia procedure
     Dosage: 0.4MG/DAY
     Route: 065
  13. MIDAZOLAM [Concomitant]
     Active Substance: MIDAZOLAM
     Indication: Anaesthesia procedure
     Dosage: 3MG/DAY
     Route: 065
  14. ROCURONIUM BROMIDE [Concomitant]
     Active Substance: ROCURONIUM BROMIDE
     Indication: Anaesthesia procedure
     Dosage: 50MG/DAY
     Route: 065
  15. SEVOFLURANE [Concomitant]
     Active Substance: SEVOFLURANE
     Dosage: 3%/DAY
     Route: 065
  16. SEVOFLURANE [Concomitant]
     Active Substance: SEVOFLURANE
     Dosage: 1%/DAY
     Route: 065
  17. SEVOFLURANE [Concomitant]
     Active Substance: SEVOFLURANE
     Dosage: 3%/DAY
     Route: 065
  18. SEVOFLURANE [Concomitant]
     Active Substance: SEVOFLURANE
     Dosage: 3%/DAY
     Route: 065
  19. SEVOFLURANE [Concomitant]
     Active Substance: SEVOFLURANE
     Dosage: 1%/DAY
     Route: 065
  20. PROPOFOL [Concomitant]
     Active Substance: PROPOFOL
     Dosage: 10ML/H
     Route: 065
  21. PROPOFOL [Concomitant]
     Active Substance: PROPOFOL
     Dosage: 25ML/H
     Route: 065
  22. PROPOFOL [Concomitant]
     Active Substance: PROPOFOL
     Dosage: 20ML/H
     Route: 065
  23. DOBUTAMINE HYDROCHLORIDE [Concomitant]
     Active Substance: DOBUTAMINE HYDROCHLORIDE
     Dosage: 3UG/KG/MIN
     Route: 065
  24. DOBUTAMINE HYDROCHLORIDE [Concomitant]
     Active Substance: DOBUTAMINE HYDROCHLORIDE
     Dosage: 5UG/KG/MIN
     Route: 065
  25. DOBUTAMINE HYDROCHLORIDE [Concomitant]
     Active Substance: DOBUTAMINE HYDROCHLORIDE
     Dosage: 10UG/KG/MIN
     Route: 065
  26. NOREPINEPHRINE [Concomitant]
     Active Substance: NOREPINEPHRINE
     Dosage: 0.02UG/KG/MIN
     Route: 065
  27. NOREPINEPHRINE [Concomitant]
     Active Substance: NOREPINEPHRINE
     Dosage: 0.04UG/KG/MIN
     Route: 065
  28. NOREPINEPHRINE [Concomitant]
     Active Substance: NOREPINEPHRINE
     Dosage: 0.02UG/KG/MIN
     Route: 065
  29. NOREPINEPHRINE [Concomitant]
     Active Substance: NOREPINEPHRINE
     Dosage: 0.04UG/KG/MIN
     Route: 065
  30. NOREPINEPHRINE [Concomitant]
     Active Substance: NOREPINEPHRINE
     Dosage: 0.06UG/KG/MIN
     Route: 065
  31. NOREPINEPHRINE [Concomitant]
     Active Substance: NOREPINEPHRINE
     Dosage: 0.1UG/KG/MIN
     Route: 065
  32. NOREPINEPHRINE [Concomitant]
     Active Substance: NOREPINEPHRINE
     Dosage: 0.2UG/KG/MIN
     Route: 065
  33. NOREPINEPHRINE [Concomitant]
     Active Substance: NOREPINEPHRINE
     Dosage: 0.3UG/KG/MIN
     Route: 065
  34. VASOPRESSIN [Concomitant]
     Active Substance: VASOPRESSIN
     Dosage: 0.6U/H
     Route: 065
  35. VASOPRESSIN [Concomitant]
     Active Substance: VASOPRESSIN
     Dosage: 1.2U/H
     Route: 065
  36. VASOPRESSIN [Concomitant]
     Active Substance: VASOPRESSIN
     Dosage: 1.8U/H
     Route: 065
  37. VASOPRESSIN [Concomitant]
     Active Substance: VASOPRESSIN
     Dosage: 2.4U/H
     Route: 065
  38. VASOPRESSIN [Concomitant]
     Active Substance: VASOPRESSIN
     Dosage: 1U/DAY, 3 TIMES
     Route: 065
  39. ISOSORBIDE DINITRATE [Concomitant]
     Active Substance: ISOSORBIDE DINITRATE
     Dosage: 0.48UG/KG/MIN
     Route: 065
  40. MILRINONE [Concomitant]
     Active Substance: MILRINONE
     Dosage: 0.16UG/KG/MIN
     Route: 065
  41. MILRINONE [Concomitant]
     Active Substance: MILRINONE
     Dosage: 0.32UG/KG/MIN
     Route: 065
  42. MILRINONE [Concomitant]
     Active Substance: MILRINONE
     Dosage: 0.48UG/KG/MIN
     Route: 065
  43. MILRINONE [Concomitant]
     Active Substance: MILRINONE
     Dosage: 0.64UG/KG/MIN
     Route: 065
  44. MILRINONE [Concomitant]
     Active Substance: MILRINONE
     Dosage: 50 UG/KG, SINGLE
     Route: 065
  45. JANUVIA [Concomitant]
     Active Substance: SITAGLIPTIN PHOSPHATE
     Indication: Type 2 diabetes mellitus
     Dosage: 50 MG, QD
     Route: 048
  46. LIPITOR [Concomitant]
     Active Substance: ATORVASTATIN CALCIUM
     Indication: Dyslipidaemia
     Dosage: 10 MG, QD
     Route: 048
  47. TEPRENONE [Concomitant]
     Active Substance: TEPRENONE
     Indication: Gastric ulcer
     Dosage: 50 MG, TID
     Route: 048
  48. MOSAPRIDE CITRATE [Concomitant]
     Active Substance: MOSAPRIDE CITRATE
     Indication: Chronic gastritis
     Dosage: 5 MG, TID
     Route: 048
  49. ASPIRIN\LANSOPRAZOLE [Concomitant]
     Active Substance: ASPIRIN\LANSOPRAZOLE
     Indication: Myocardial ischaemia
     Dosage: 1 DF, QD
     Route: 048
  50. ASPIRIN\LANSOPRAZOLE [Concomitant]
     Active Substance: ASPIRIN\LANSOPRAZOLE
     Indication: Coronary artery stenosis

REACTIONS (4)
  - Haemorrhage [Recovered/Resolved]
  - Arterial injury [Recovering/Resolving]
  - Liver disorder [Unknown]
  - Platelet count decreased [Unknown]

NARRATIVE: CASE EVENT DATE: 20190930
